FAERS Safety Report 20570622 (Version 2)
Quarter: 2022Q3

REPORT INFORMATION
  Report Type: Report from Study
  Country: US (occurrence: US)
  Receive Date: 20220309
  Receipt Date: 20220920
  Transmission Date: 20221027
  Serious: Yes (Hospitalization)
  Sender: FDA-Public Use
  Company Number: US-SAMOHPHARM-2021004621

PATIENT

DRUGS (2)
  1. CARBAGLU [Suspect]
     Active Substance: CARGLUMIC ACID
     Indication: Hyperglycinaemia
     Dosage: 1000 MILLIGRAM, QID
     Dates: start: 20170120
  2. CARBAGLU [Suspect]
     Active Substance: CARGLUMIC ACID
     Dosage: 1000 MILLIGRAM, QID

REACTIONS (5)
  - Faecal volume increased [Recovered/Resolved]
  - Stoma site inflammation [Recovered/Resolved]
  - Ammonia increased [Recovered/Resolved]
  - Condition aggravated [Unknown]
  - Vomiting [Recovered/Resolved]

NARRATIVE: CASE EVENT DATE: 20211015
